FAERS Safety Report 4563063-9 (Version None)
Quarter: 2005Q1

REPORT INFORMATION
  Report Type: 
  Country: None (occurrence: None)
  Receive Date: 20050125
  Receipt Date: 20050120
  Transmission Date: 20050727
  Serious: Yes (Hospitalization)
  Sender: FDA-Public Use
  Company Number: BEWYE317805JAN05

PATIENT
  Age: 49 Year
  Sex: Female

DRUGS (3)
  1. RAPAMUNE [Suspect]
     Indication: PROPHYLAXIS AGAINST TRANSPLANT REJECTION
     Dosage: 5 MG 1X PER 1 DAY
     Route: 048
     Dates: start: 20041025, end: 20050105
  2. MYCOPHENOLATE MOFETIL (MYCOPHENOLATE MOFETIL) [Concomitant]
  3. MEDROL (METHYLPREDNISOLONE) UNKNOWN [Concomitant]

REACTIONS (2)
  - CYTOMEGALOVIRUS INFECTION [None]
  - INTERSTITIAL LUNG DISEASE [None]
